FAERS Safety Report 10009395 (Version 3)
Quarter: 2014Q4

REPORT INFORMATION
  Report Type: Spontaneous
  Country: JP (occurrence: JP)
  Receive Date: 20140313
  Receipt Date: 20141230
  Transmission Date: 20150528
  Serious: Yes (Other)
  Sender: FDA-Public Use
  Company Number: JP-TEVA-464048ISR

PATIENT
  Age: 42 Year
  Sex: Male
  Weight: 46 kg

DRUGS (14)
  1. CLINDAMYCIN [Suspect]
     Active Substance: CLINDAMYCIN\CLINDAMYCIN PHOSPHATE
     Indication: INFECTION
     Dosage: 600 MILLIGRAM DAILY;
     Route: 030
     Dates: start: 20120719, end: 20120723
  2. ALFAROL [Concomitant]
     Active Substance: ALFACALCIDOL
     Dosage: 2 ML DAILY;
     Route: 048
  3. PENTCILLIN [Concomitant]
     Active Substance: PIPERACILLIN SODIUM
     Indication: INFECTION
     Dosage: 3 GRAM DAILY;
     Route: 030
     Dates: start: 20120716, end: 20120729
  4. SENNA [Concomitant]
     Active Substance: SENNA LEAF\SENNOSIDES\SENNOSIDES A AND B
     Route: 048
  5. PHENOBAL POWDER [Concomitant]
     Dosage: 1.8 GRAM DAILY;
     Route: 048
  6. CALCIUM LACTATE [Concomitant]
     Active Substance: CALCIUM LACTATE
     Route: 048
  7. DEPAKENE FINE GRANULES [Concomitant]
     Dosage: 9 GRAM DAILY;
     Route: 048
  8. DIAMOX  POW [Concomitant]
     Dosage: .9 GRAM DAILY;
     Route: 048
  9. ENTERONON R [Concomitant]
     Dosage: 9 GRAM DAILY;
     Route: 048
  10. DALACIN CAPSULES [Concomitant]
     Route: 048
  11. CLINDAMYCIN [Suspect]
     Active Substance: CLINDAMYCIN\CLINDAMYCIN PHOSPHATE
     Dosage: 1200 MILLIGRAM DAILY;
     Route: 030
     Dates: start: 20120724, end: 20120729
  12. XYLOCAINE [Concomitant]
     Active Substance: LIDOCAINE HYDROCHLORIDE
     Indication: INFECTION
     Dosage: 9 ML DAILY;
     Route: 030
     Dates: start: 20120716, end: 20120729
  13. BACCIDAL TABLETS [Concomitant]
     Dosage: 50 MILLIGRAM DAILY;
     Route: 048
  14. MAGMITT TAB.330MG [Concomitant]
     Active Substance: MAGNESIUM OXIDE
     Dosage: 990 MILLIGRAM DAILY;
     Route: 048

REACTIONS (3)
  - Injection site necrosis [Recovered/Resolved]
  - Injection site erythema [Recovered/Resolved]
  - Injection site induration [Recovered/Resolved]

NARRATIVE: CASE EVENT DATE: 20120724
